FAERS Safety Report 7093199-2 (Version None)
Quarter: 2010Q4

REPORT INFORMATION
  Report Type: 
  Country: None (occurrence: None)
  Receive Date: 20101110
  Receipt Date: 20101005
  Transmission Date: 20110411
  Serious: Yes (Hospitalization, Other)
  Sender: FDA-Public Use
  Company Number: DE-GENZYME-FLUD-1000127

PATIENT
  Sex: Female

DRUGS (13)
  1. FLUDARA [Suspect]
     Indication: STEM CELL TRANSPLANT
     Dosage: 30 MG/M2, QDX5
     Route: 042
  2. FLUDARA [Suspect]
     Indication: NON-HODGKIN'S LYMPHOMA RECURRENT
  3. ZEVALIN [Suspect]
     Indication: STEM CELL TRANSPLANT
     Dosage: 0.4 MCI/KG, ONCE
     Route: 042
  4. ZEVALIN [Suspect]
     Indication: NON-HODGKIN'S LYMPHOMA RECURRENT
  5. YTRACIS [Suspect]
     Indication: STEM CELL TRANSPLANT
     Dosage: 0.4 MCI/KG, ONCE
     Route: 042
  6. YTRACIS [Suspect]
     Indication: NON-HODGKIN'S LYMPHOMA RECURRENT
  7. RITUXIMAB [Suspect]
     Indication: STEM CELL TRANSPLANT
     Dosage: 250 MG/M2, QDX2
     Route: 042
  8. RITUXIMAB [Suspect]
     Indication: NON-HODGKIN'S LYMPHOMA RECURRENT
  9. BUSULFAN [Suspect]
     Indication: STEM CELL TRANSPLANT
     Dosage: UNK, QDX2
     Route: 048
  10. BUSULFAN [Suspect]
     Indication: NON-HODGKIN'S LYMPHOMA RECURRENT
  11. THYMOGLOBULIN [Suspect]
     Indication: STEM CELL TRANSPLANT
     Dosage: 2.5 MG/KG, ONCE
     Route: 065
  12. THYMOGLOBULIN [Suspect]
     Indication: NON-HODGKIN'S LYMPHOMA RECURRENT
  13. CYCLOSPORINE [Concomitant]
     Indication: PROPHYLAXIS AGAINST GRAFT VERSUS HOST DISEASE
     Dosage: UNK UNK, UNK

REACTIONS (16)
  - ABDOMINAL PAIN [None]
  - COLITIS [None]
  - DIARRHOEA [None]
  - ERYTHEMA [None]
  - ESCHERICHIA TEST POSITIVE [None]
  - FEBRILE NEUTROPENIA [None]
  - GRAFT VERSUS HOST DISEASE [None]
  - HUMAN HERPESVIRUS 6 INFECTION [None]
  - HYPOKALAEMIA [None]
  - HYPONATRAEMIA [None]
  - KLEBSIELLA SEPSIS [None]
  - OESOPHAGEAL CANDIDIASIS [None]
  - PANCYTOPENIA [None]
  - PAROTITIS [None]
  - PYREXIA [None]
  - RASH PAPULAR [None]
